FAERS Safety Report 23516391 (Version 1)
Quarter: 2024Q1

REPORT INFORMATION
  Report Type: Spontaneous
  Country: GB (occurrence: GB)
  Receive Date: 20240213
  Receipt Date: 20240213
  Transmission Date: 20240409
  Serious: No
  Sender: FDA-Public Use
  Company Number: None

PATIENT
  Age: 88 Year

DRUGS (13)
  1. LINEZOLID [Suspect]
     Active Substance: LINEZOLID
     Indication: Product used for unknown indication
     Dosage: 600 MILLIGRAM, BID (12/10-20/10)
     Route: 065
  2. CHLORAMPHENICOL [Concomitant]
     Active Substance: CHLORAMPHENICOL
     Indication: Product used for unknown indication
     Dosage: UNK (EYE DROPS 1 DROP LEFT EYE QDS)
     Route: 065
  3. CLOPIDOGREL [Concomitant]
     Active Substance: CLOPIDOGREL BISULFATE
     Indication: Product used for unknown indication
     Dosage: 1 DOSAGE FORM, QD
     Route: 065
  4. Conotrane [Concomitant]
     Indication: Product used for unknown indication
     Dosage: UNK (APPLY TO AFFECTED AREA REGULARLY)
     Route: 065
  5. DOXYCYCLINE [Concomitant]
     Active Substance: DOXYCYCLINE
     Indication: Product used for unknown indication
     Dosage: UNK (ONE TO BE TAKEN TWICE A DAY 14 CAPSULE INPATIENT MEDS, 20/10-21/10)
     Route: 065
  6. FOLIC ACID [Concomitant]
     Active Substance: FOLIC ACID
     Indication: Product used for unknown indication
     Dosage: UNK, QD (ONE TO BE TAKEN EACH DAY STOPPED FOLATE }20)
     Route: 065
  7. GENTAMICIN [Concomitant]
     Active Substance: GENTAMICIN
     Indication: Product used for unknown indication
     Dosage: UNK (STAT 12/10)
     Route: 065
  8. HYDROXOCOBALAMIN [Concomitant]
     Active Substance: HYDROXOCOBALAMIN
     Indication: Product used for unknown indication
     Dosage: UNK (1MG/1ML SOLUTION FOR INJECTION AMPOULES 1 ML IMI EVERY 12 WEEKS)
     Route: 065
  9. LEVOTHYROXINE [Concomitant]
     Active Substance: LEVOTHYROXINE\LEVOTHYROXINE SODIUM
     Indication: Product used for unknown indication
     Dosage: 1 DOSAGE FORM, QD
     Route: 065
  10. OMEPRAZOLE [Concomitant]
     Active Substance: OMEPRAZOLE
     Indication: Product used for unknown indication
     Dosage: UNK (GASTRO-RESISTANT CAPSULES TAKE 2 MANE)
     Route: 065
  11. ACETAMINOPHEN [Concomitant]
     Active Substance: ACETAMINOPHEN
     Indication: Product used for unknown indication
     Dosage: UNK (TWO TO BE TAKEN EVERY 4-6 HOURS UP TO FOUR TIMES A DAY ACUTES)
     Route: 065
  12. PREDNISOLONE [Concomitant]
     Active Substance: PREDNISOLONE
     Indication: Product used for unknown indication
     Dosage: UNK, QD (TWO TO BE TAKEN EACH DAY)
     Route: 065
  13. UREA [Concomitant]
     Active Substance: UREA
     Indication: Product used for unknown indication
     Dosage: UNK, BID (APPLY TWICE A DAY)
     Route: 065

REACTIONS (1)
  - Liver function test abnormal [Unknown]
